FAERS Safety Report 4268626-6 (Version None)
Quarter: 2004Q1

REPORT INFORMATION
  Report Type: 
  Country: None (occurrence: None)
  Receive Date: 20040109
  Receipt Date: 20040109
  Transmission Date: 20041129
  Serious: Yes (Life-Threatening, Disabling, Other)
  Sender: FDA-Public Use
  Company Number: None

PATIENT
  Age: 53 Year
  Sex: Female
  Weight: 58.0604 kg

DRUGS (2)
  1. GENTAMYCIN SULFATE [Suspect]
     Dosage: SUBCLAVIAN CATHETER 6 CC - 3 CC FLUSH
     Dates: start: 19950728, end: 19950729
  2. GENTAMYCIN SULFATE [Suspect]
     Dosage: SUBCLAVIAN CATHETER 6 CC - 3 CC FLUSH
     Dates: start: 19950626

REACTIONS (12)
  - ABASIA [None]
  - ACTIVITIES OF DAILY LIVING IMPAIRED [None]
  - BALANCE DISORDER [None]
  - CRANIAL NERVE DISORDER [None]
  - DECREASED APPETITE [None]
  - DEPRESSION [None]
  - FEELING DRUNK [None]
  - HYPOACUSIS [None]
  - LIVER DISORDER [None]
  - NAUSEA [None]
  - RENAL DISORDER [None]
  - VISUAL DISTURBANCE [None]
